FAERS Safety Report 15851754 (Version 5)
Quarter: 2025Q3

REPORT INFORMATION
  Report Type: Report from Study
  Country: US (occurrence: US)
  Receive Date: 20190122
  Receipt Date: 20250709
  Transmission Date: 20251021
  Serious: Yes (Death, Hospitalization, Disabling, Other)
  Sender: IPSEN BIOPHARMACEUTICALS, INC.
  Company Number: US-IPSEN BIOPHARMACEUTICALS, INC.-2019-00671

PATIENT
  Sex: Female
  Weight: 29 kg

DRUGS (2)
  1. ONIVYDE [Suspect]
     Active Substance: IRINOTECAN HYDROCHLORIDE
     Indication: Brain stem glioma
  2. DEXAMETHASONE [Concomitant]
     Active Substance: DEXAMETHASONE
     Indication: Oedema
     Dates: end: 20190123

REACTIONS (10)
  - Death [Fatal]
  - Dysarthria [Recovering/Resolving]
  - Hemiparesis [Fatal]
  - Gait inability [Recovering/Resolving]
  - Disease progression [Recovering/Resolving]
  - Brain oedema [Recovering/Resolving]
  - Speech disorder [Recovering/Resolving]
  - Hemiparesis [Recovered/Resolved]
  - Facial paralysis [Recovering/Resolving]
  - Headache [Unknown]

NARRATIVE: CASE EVENT DATE: 20190101
